FAERS Safety Report 7752009-8 (Version None)
Quarter: 2011Q3

REPORT INFORMATION
  Report Type: 
  Country: None (occurrence: None)
  Receive Date: 20110913
  Receipt Date: 20110906
  Transmission Date: 20111222
  Serious: Yes (Death)
  Sender: FDA-Public Use
  Company Number: 2011SP042288

PATIENT

DRUGS (1)
  1. MIRTAZAPINE [Suspect]
     Indication: PRODUCT USED FOR UNKNOWN INDICATION

REACTIONS (3)
  - TOXICITY TO VARIOUS AGENTS [None]
  - DRUG INTERACTION [None]
  - COMPLETED SUICIDE [None]
